FAERS Safety Report 5143264-1 (Version None)
Quarter: 2006Q4

REPORT INFORMATION
  Report Type: 
  Country: None (occurrence: None)
  Receive Date: 20061030
  Receipt Date: 20061016
  Transmission Date: 20070319
  Serious: Yes (Hospitalization)
  Sender: FDA-Public Use
  Company Number: 2006JP004187

PATIENT
  Age: 13 Year
  Sex: Male

DRUGS (3)
  1. PROTOPIC [Suspect]
     Dosage: SEE IMAGE
     Route: 061
     Dates: start: 20060201, end: 20061001
  2. PROTOPIC [Suspect]
     Dosage: SEE IMAGE
     Route: 061
     Dates: start: 20040201
  3. ALMETA (ALCLOMETASONE DIPROPIONATE) [Concomitant]

REACTIONS (2)
  - KAPOSI'S VARICELLIFORM ERUPTION [None]
  - LYMPHADENOPATHY [None]
